FAERS Safety Report 6439529-3 (Version None)
Quarter: 2009Q4

REPORT INFORMATION
  Report Type: 
  Country: None (occurrence: None)
  Receive Date: 20091113
  Receipt Date: 20091110
  Transmission Date: 20100525
  Serious: Yes (Hospitalization)
  Sender: FDA-Public Use
  Company Number: A0816404A

PATIENT
  Sex: Female

DRUGS (1)
  1. AVANDAMET [Suspect]
     Indication: DIABETES MELLITUS
     Route: 048
     Dates: start: 20030101, end: 20050101

REACTIONS (2)
  - HEPATOMEGALY [None]
  - LIVER DISORDER [None]
